FAERS Safety Report 18598253 (Version 2)
Quarter: 2021Q1

REPORT INFORMATION
  Report Type: Spontaneous
  Country: JP (occurrence: JP)
  Receive Date: 20201209
  Receipt Date: 20210130
  Transmission Date: 20210419
  Serious: Yes (Hospitalization)
  Sender: FDA-Public Use
  Company Number: JP-ROCHE-2728741

PATIENT
  Age: 73 Year
  Sex: Female
  Weight: 38 kg

DRUGS (3)
  1. CARBOPLATIN. [Suspect]
     Active Substance: CARBOPLATIN
     Indication: SMALL CELL LUNG CANCER
     Dosage: MOST RECENT DOSE OF CARBOPLATIN PRIOR TO EVENTS ONSET ON 02/OCT/2020
     Route: 041
     Dates: start: 20200717
  2. ETOPOSIDE. [Suspect]
     Active Substance: ETOPOSIDE
     Indication: SMALL CELL LUNG CANCER
     Dosage: MOST RECENT DOSE OF CARBOPLATIN PRIOR TO EVENTS ONSET ON 02/OCT/2020
     Route: 041
     Dates: start: 20200717
  3. TECENTRIQ [Suspect]
     Active Substance: ATEZOLIZUMAB
     Indication: SMALL CELL LUNG CANCER
     Dosage: MOST RECENT DOSE OF ATEZOLIZUMAB PRIOR TO EVENTS ONSET ON 20/NOV/2020
     Route: 041
     Dates: start: 20200717

REACTIONS (2)
  - Hypokalaemia [Recovering/Resolving]
  - Hyperadrenalism [Not Recovered/Not Resolved]

NARRATIVE: CASE EVENT DATE: 20201122
